FAERS Safety Report 12184823 (Version 4)
Quarter: 2016Q2

REPORT INFORMATION
  Report Type: Spontaneous
  Country: JP (occurrence: JP)
  Receive Date: 20160316
  Receipt Date: 20160603
  Transmission Date: 20160815
  Serious: Yes (Death, Life-Threatening)
  Sender: FDA-Public Use
  Company Number: JP-SA-2016SA053568

PATIENT
  Age: 65 Year
  Sex: Male
  Weight: 52 kg

DRUGS (9)
  1. XELODA [Concomitant]
     Active Substance: CAPECITABINE
     Route: 065
     Dates: start: 20160215, end: 20160310
  2. ALOXI [Concomitant]
     Active Substance: PALONOSETRON HYDROCHLORIDE
     Route: 065
     Dates: start: 20160310, end: 20160310
  3. TRANSAMIN [Concomitant]
     Active Substance: TRANEXAMIC ACID
     Route: 065
     Dates: start: 20160311, end: 20160311
  4. MORPHINE HYDROCHLORIDE [Concomitant]
     Active Substance: MORPHINE HYDROCHLORIDE
     Indication: DYSPNOEA
     Route: 065
     Dates: start: 20160311, end: 20160311
  5. DECADRON [Concomitant]
     Active Substance: DEXAMETHASONE
     Route: 065
     Dates: start: 20160310, end: 20160310
  6. DORMICUM [Concomitant]
     Active Substance: MIDAZOLAM\MIDAZOLAM HYDROCHLORIDE
     Indication: DYSPNOEA
     Route: 065
     Dates: start: 20160311, end: 20160311
  7. ELPLAT [Suspect]
     Active Substance: OXALIPLATIN
     Indication: GASTRIC CANCER
     Dosage: FORM: INFUSION SOLUTION INJECTION.
     Route: 041
     Dates: start: 20160310, end: 20160310
  8. SOL-MELCORT [Concomitant]
     Active Substance: METHYLPREDNISOLONE SODIUM SUCCINATE
     Route: 065
     Dates: start: 20160311, end: 20160311
  9. ADONA [Concomitant]
     Active Substance: CARBAZOCHROME SODIUM SULFONATE
     Route: 065
     Dates: start: 20160311, end: 20160311

REACTIONS (2)
  - Pulmonary alveolar haemorrhage [Fatal]
  - White blood cell count decreased [Fatal]

NARRATIVE: CASE EVENT DATE: 20160310
